FAERS Safety Report 23077884 (Version 1)
Quarter: 2023Q4

REPORT INFORMATION
  Report Type: Spontaneous
  Country: KR (occurrence: KR)
  Receive Date: 20231018
  Receipt Date: 20231018
  Transmission Date: 20240110
  Serious: Yes (Other)
  Sender: FDA-Public Use
  Company Number: KR-009507513-2310KOR003510

PATIENT
  Sex: Male

DRUGS (3)
  1. KEYTRUDA [Suspect]
     Active Substance: PEMBROLIZUMAB
     Dosage: 200 MILLIGRAM, 1 DAY
     Route: 042
     Dates: start: 20220923, end: 20220923
  2. PACLITAXEL [Suspect]
     Active Substance: PACLITAXEL
     Dosage: 246 MILLIGRAM, 1 DAY
     Route: 042
     Dates: start: 20220923, end: 20220923
  3. CARBOPLATIN [Suspect]
     Active Substance: CARBOPLATIN
     Dosage: 307 MILLIGRAM, 1 DAY
     Route: 042
     Dates: start: 20220923, end: 20220923

REACTIONS (1)
  - Leukopenia [Recovered/Resolved]

NARRATIVE: CASE EVENT DATE: 20220930
